FAERS Safety Report 25045151 (Version 1)
Quarter: 2025Q1

REPORT INFORMATION
  Report Type: Report from Study
  Country: US (occurrence: US)
  Receive Date: 20250306
  Receipt Date: 20250306
  Transmission Date: 20250408
  Serious: Yes (Hospitalization)
  Sender: ABBVIE
  Company Number: US-ABBVIE-6155435

PATIENT
  Age: 77 Year
  Sex: Female

DRUGS (4)
  1. CREON [Suspect]
     Active Substance: PANCRELIPASE AMYLASE\PANCRELIPASE LIPASE\PANCRELIPASE PROTEASE
     Indication: Pancreatic failure
     Route: 048
     Dates: start: 20070226, end: 2020
  2. Cypro [Concomitant]
     Indication: Product used for unknown indication
  3. LEVAQUIN [Concomitant]
     Active Substance: LEVOFLOXACIN
     Indication: Product used for unknown indication
  4. CIPRO [Concomitant]
     Active Substance: CIPROFLOXACIN HYDROCHLORIDE
     Indication: Product used for unknown indication

REACTIONS (7)
  - Anaphylactic shock [Unknown]
  - Tendon rupture [Unknown]
  - Fall [Not Recovered/Not Resolved]
  - Pain in extremity [Unknown]
  - Tinnitus [Unknown]
  - Femur fracture [Unknown]
  - Breast mass [Unknown]

NARRATIVE: CASE EVENT DATE: 20241221
